FAERS Safety Report 8441126-5 (Version None)
Quarter: 2012Q2

REPORT INFORMATION
  Report Type: 
  Country: None (occurrence: None)
  Receive Date: 20120615
  Receipt Date: 20120605
  Transmission Date: 20120825
  Serious: Yes (Death)
  Sender: FDA-Public Use
  Company Number: US-ELI_LILLY_AND_COMPANY-US201205002898

PATIENT
  Age: 65 Year
  Sex: Male
  Weight: 60.317 kg

DRUGS (15)
  1. GEODON [Concomitant]
     Dosage: 80 MG, QD
     Dates: start: 20110608
  2. BUPROPION HCL [Concomitant]
     Dosage: 150 MG, QD
     Dates: start: 20101222
  3. NITROSTAT [Concomitant]
     Indication: CHEST PAIN
     Dosage: 0.3 MG, PRN
     Dates: start: 20110608
  4. NEXIUM [Concomitant]
     Dosage: 40 MG, QD
     Dates: start: 20101222
  5. METHADONE HCL [Concomitant]
     Dosage: 3 DF, QID
     Dates: start: 20110720
  6. VYTORIN [Concomitant]
     Dosage: 1 DF, QD
     Dates: start: 20101222
  7. OXYCODONE                          /00045603/ [Concomitant]
     Dosage: 15 MG, TID
     Dates: start: 20101222
  8. ANDROGEL [Concomitant]
     Dosage: 1 DF, EACH MORNING
     Dates: start: 20110608
  9. CYMBALTA [Suspect]
     Indication: DEPRESSION
     Dosage: 120 MG, EACH EVENING
     Route: 048
     Dates: start: 20020101
  10. ASPIRIN [Concomitant]
     Dosage: 81 MG, QD
     Dates: start: 20110608
  11. REGLAN [Concomitant]
     Dosage: 10 MG, QD
     Dates: start: 20110720
  12. DIAZEPAM [Concomitant]
     Dosage: 10 MG, PRN
     Dates: start: 20110720
  13. OMEPRAZOLE [Concomitant]
     Dosage: 20 MG, BID
     Dates: start: 20110608
  14. LITHIUM CARBONATE [Concomitant]
     Dosage: 150 MG, BID
     Dates: start: 20110720
  15. GABAPENTIN [Concomitant]
     Dosage: 600 MG, QD
     Dates: start: 20110608

REACTIONS (1)
  - DEATH [None]
